FAERS Safety Report 12972959 (Version 2)
Quarter: 2016Q4

REPORT INFORMATION
  Report Type: Spontaneous
  Country: US (occurrence: US)
  Receive Date: 20161124
  Receipt Date: 20161230
  Transmission Date: 20170207
  Serious: No
  Sender: FDA-Public Use
  Company Number: US-PFIZER INC-2016545293

PATIENT
  Age: 46 Year
  Sex: Female
  Weight: 101.15 kg

DRUGS (1)
  1. CHANTIX [Suspect]
     Active Substance: VARENICLINE TARTRATE
     Indication: SMOKING CESSATION THERAPY
     Dosage: 1 DF (ONE TABLET), 2X/DAY
     Route: 048

REACTIONS (1)
  - Abnormal dreams [Recovered/Resolved]
